FAERS Safety Report 8342323-X (Version None)
Quarter: 2012Q2

REPORT INFORMATION
  Report Type: 
  Country: None (occurrence: None)
  Receive Date: 20120507
  Receipt Date: 20120427
  Transmission Date: 20120825
  Serious: Yes (Other)
  Sender: FDA-Public Use
  Company Number: JP-BRISTOL-MYERS SQUIBB COMPANY-16530800

PATIENT
  Age: 69 Year
  Sex: Female

DRUGS (3)
  1. METFORMIN HCL [Suspect]
     Indication: DIABETES MELLITUS
     Dosage: INTIAL DOSE:250MG INCREASE TO 500MG:1WEEKS
     Route: 048
  2. LEVEMIR [Concomitant]
     Route: 058
  3. LEVEMIR [Concomitant]
     Dosage: INJECTION
     Route: 058

REACTIONS (3)
  - ERYTHEMA [None]
  - GLYCOSYLATED HAEMOGLOBIN INCREASED [None]
  - PAIN [None]
